FAERS Safety Report 16740693 (Version 1)
Quarter: 2019Q3

REPORT INFORMATION
  Report Type: Spontaneous
  Country: US (occurrence: US)
  Receive Date: 20190826
  Receipt Date: 20190826
  Transmission Date: 20191005
  Serious: No
  Sender: FDA-Public Use
  Company Number: US-PERRIGO-18US014155

PATIENT
  Age: 64 Year
  Sex: Male
  Weight: 72.56 kg

DRUGS (1)
  1. NICOTINE POLACRILEX [Suspect]
     Active Substance: NICOTINE
     Indication: SMOKING CESSATION THERAPY
     Dosage: 4 MG. SINGLE
     Route: 002
     Dates: start: 20181203, end: 20181203

REACTIONS (3)
  - Dyspepsia [Recovered/Resolved]
  - Throat irritation [Recovered/Resolved]
  - Chest pain [Recovered/Resolved]

NARRATIVE: CASE EVENT DATE: 20181203
